FAERS Safety Report 15461531 (Version 1)
Quarter: 2018Q4

REPORT INFORMATION
  Report Type: Spontaneous
  Country: BR (occurrence: BR)
  Receive Date: 20181003
  Receipt Date: 20181003
  Transmission Date: 20190204
  Serious: Yes (Other)
  Sender: FDA-Public Use
  Company Number: PHHY2018BR111882

PATIENT
  Age: 46 Year
  Sex: Female

DRUGS (3)
  1. CARBAMAZEPINE. [Suspect]
     Active Substance: CARBAMAZEPINE
     Indication: HORNER^S SYNDROME
     Route: 065
  2. CARBAMAZEPINE. [Suspect]
     Active Substance: CARBAMAZEPINE
     Indication: SEIZURE
  3. CARBAMAZEPINE. [Suspect]
     Active Substance: CARBAMAZEPINE
     Indication: INJURY TO BRACHIAL PLEXUS DUE TO BIRTH TRAUMA

REACTIONS (4)
  - Diarrhoea [Unknown]
  - Herpes zoster [Unknown]
  - Respiratory tract infection [Unknown]
  - Hypogammaglobulinaemia [Recovered/Resolved]
